FAERS Safety Report 9198116 (Version 1)
Quarter: 2013Q1

REPORT INFORMATION
  Report Type: Spontaneous
  Country: CA (occurrence: CA)
  Receive Date: 20130329
  Receipt Date: 20130329
  Transmission Date: 20140127
  Serious: Yes (Hospitalization)
  Sender: FDA-Public Use
  Company Number: CA-ELI_LILLY_AND_COMPANY-CA201303007141

PATIENT
  Age: 77 Year
  Sex: Female

DRUGS (12)
  1. FORTEO [Suspect]
     Indication: OSTEOPOROSIS
     Dosage: 20 UG, QD
     Route: 058
     Dates: start: 20120718, end: 20130314
  2. FORTEO [Suspect]
     Dosage: 20 UG, QD
     Route: 058
     Dates: start: 20130319
  3. VALSARTAN [Concomitant]
  4. PANTOPRAZOLE [Concomitant]
  5. CALCIUM [Concomitant]
  6. VITAMIN B12 [Concomitant]
  7. LORAZEPAM [Concomitant]
  8. ATORVASTATIN [Concomitant]
  9. AMLODIPINE [Concomitant]
  10. METOPROLOL [Concomitant]
  11. JANUMET [Concomitant]
  12. GLICLAZIDE [Concomitant]

REACTIONS (1)
  - Femur fracture [Not Recovered/Not Resolved]
